FAERS Safety Report 19058512 (Version 1)
Quarter: 2021Q1

REPORT INFORMATION
  Report Type: Spontaneous
  Country: US (occurrence: US)
  Receive Date: 20210325
  Receipt Date: 20210325
  Transmission Date: 20210420
  Serious: No
  Sender: FDA-Public Use
  Company Number: US-ORGANON-O2102USA007817

PATIENT
  Age: 22 Year
  Sex: Female
  Weight: 42.63 kg

DRUGS (1)
  1. NEXPLANON [Suspect]
     Active Substance: ETONOGESTREL
     Dosage: 1 IMPLANT IN LEFT UPPER ARM
     Route: 059
     Dates: start: 201902, end: 20210302

REACTIONS (3)
  - Complication of device removal [Recovered/Resolved]
  - Implant site pain [Unknown]
  - Implant site hypoaesthesia [Unknown]

NARRATIVE: CASE EVENT DATE: 20210223
